FAERS Safety Report 4290202-X (Version None)
Quarter: 2004Q1

REPORT INFORMATION
  Report Type: 
  Country: None (occurrence: None)
  Receive Date: 20040209
  Receipt Date: 20040126
  Transmission Date: 20041129
  Serious: Yes (Hospitalization, Other)
  Sender: FDA-Public Use
  Company Number: 2004005359

PATIENT
  Age: 58 Year
  Sex: Male
  Weight: 79.3795 kg

DRUGS (5)
  1. VIAGRA [Suspect]
     Indication: ERECTILE DYSFUNCTION
     Dosage: 50 MG(PRN), ORAL
     Route: 048
     Dates: start: 19980101
  2. VARDENAFIL HYDROCHLORIDE (VARDENAFIL HYDROCHLORIDE) [Concomitant]
  3. LEVOTHYROXINE SODIUM [Concomitant]
  4. TOLTERODINE L-TARTRATE (TOLTERODINE L-TARTRATE) [Concomitant]
  5. ATORVASTATIN CALCIUM [Concomitant]

REACTIONS (4)
  - DRUG EFFECT DECREASED [None]
  - ERECTILE DYSFUNCTION [None]
  - HEADACHE [None]
  - PROSTATE CANCER [None]
